FAERS Safety Report 6011704-1 (Version None)
Quarter: 2008Q4

REPORT INFORMATION
  Report Type: 
  Country: None (occurrence: None)
  Receive Date: 20081218
  Receipt Date: 19910723
  Transmission Date: 20090506
  Serious: Yes (Death, Hospitalization, Disabling, Other)
  Sender: FDA-Public Use
  Company Number: DE-ROCHE-910300083001

PATIENT
  Sex: Female
  Weight: 59.4 kg

DRUGS (8)
  1. INTERFERON ALFA-2A [Suspect]
     Route: 058
     Dates: start: 19910311, end: 19910730
  2. INTERFERON ALFA-2A [Suspect]
     Route: 058
     Dates: start: 19910731, end: 19910816
  3. FLUOROURACIL [Suspect]
     Route: 042
     Dates: start: 19910514, end: 19910514
  4. FLUOROURACIL [Suspect]
     Route: 042
     Dates: start: 19910312, end: 19910316
  5. FLUOROURACIL [Suspect]
     Route: 042
     Dates: start: 19910319, end: 19910507
  6. FLUOROURACIL [Suspect]
     Route: 042
     Dates: start: 19910528, end: 19910813
  7. LOESFERRON [Concomitant]
     Indication: IRON DEFICIENCY
     Route: 048
     Dates: start: 19910314, end: 19910826
  8. ACETAMINOPHEN [Concomitant]
     Indication: PAIN
     Dosage: ALSO TAKEN FOR FEVER.
     Route: 048
     Dates: start: 19910306, end: 19910826

REACTIONS (6)
  - ABDOMINAL PAIN [None]
  - CONFUSIONAL STATE [None]
  - DISEASE PROGRESSION [None]
  - FALL [None]
  - LEUKOPENIA [None]
  - NEUROTOXICITY [None]
